FAERS Safety Report 25073468 (Version 2)
Quarter: 2025Q1

REPORT INFORMATION
  Report Type: Spontaneous
  Country: US (occurrence: US)
  Receive Date: 20250313
  Receipt Date: 20250326
  Transmission Date: 20250408
  Serious: No
  Sender: TEVA
  Company Number: US-TEVA-VS-3308217

PATIENT
  Sex: Female

DRUGS (1)
  1. GLYBURIDE [Suspect]
     Active Substance: GLYBURIDE
     Indication: Diabetes mellitus
     Route: 048

REACTIONS (2)
  - Drug ineffective [Unknown]
  - Blood glucose abnormal [Unknown]
